FAERS Safety Report 9117576 (Version 1)
Quarter: 2013Q1

REPORT INFORMATION
  Report Type: Spontaneous
  Country: CY (occurrence: CY)
  Receive Date: 20130225
  Receipt Date: 20130225
  Transmission Date: 20140127
  Serious: Yes (Other)
  Sender: FDA-Public Use
  Company Number: CY-PFIZER INC-2013062477

PATIENT
  Sex: Male

DRUGS (1)
  1. ZITHROMAX [Suspect]
     Indication: PNEUMONIA
     Dosage: UNK

REACTIONS (3)
  - Hepatic enzyme increased [Unknown]
  - Blood bilirubin increased [Unknown]
  - Serum ferritin increased [Unknown]
